FAERS Safety Report 9188407 (Version 8)
Quarter: 2017Q1

REPORT INFORMATION
  Report Type: Report from Study
  Country: CA (occurrence: CA)
  Receive Date: 20130325
  Receipt Date: 20170104
  Transmission Date: 20170429
  Serious: Yes (Hospitalization, Other)
  Sender: FDA-Public Use
  Company Number: CA-ROCHE-1136418

PATIENT
  Age: 51 Year
  Sex: Female
  Weight: 65.6 kg

DRUGS (13)
  1. CRESTOR [Concomitant]
     Active Substance: ROSUVASTATIN CALCIUM
  2. SYNTHROID [Concomitant]
     Active Substance: LEVOTHYROXINE SODIUM
  3. FOLIC ACID. [Concomitant]
     Active Substance: FOLIC ACID
  4. ACTEMRA [Suspect]
     Active Substance: TOCILIZUMAB
     Route: 058
     Dates: start: 20160805
  5. ASPIRIN, BABY [Concomitant]
  6. HYDROXYCHLOROQUINE [Concomitant]
     Active Substance: HYDROXYCHLOROQUINE
  7. METHOTREXATE. [Concomitant]
     Active Substance: METHOTREXATE
     Route: 058
  8. CORTISONE [Concomitant]
     Active Substance: CORTISONE\HYDROCORTISONE
  9. ACTEMRA [Suspect]
     Active Substance: TOCILIZUMAB
     Indication: RHEUMATOID ARTHRITIS
     Route: 058
     Dates: start: 20141224, end: 2016
  10. HUMALOG [Concomitant]
     Active Substance: INSULIN LISPRO
     Indication: DIABETES MELLITUS
  11. ACTEMRA [Suspect]
     Active Substance: TOCILIZUMAB
     Indication: RHEUMATOID ARTHRITIS
     Route: 042
     Dates: start: 20111222, end: 20141126
  12. LANTUS [Concomitant]
     Active Substance: INSULIN GLARGINE
     Indication: DIABETES MELLITUS
  13. RAMIPRIL. [Concomitant]
     Active Substance: RAMIPRIL
     Indication: BLOOD PRESSURE MEASUREMENT

REACTIONS (15)
  - Dyspepsia [Not Recovered/Not Resolved]
  - Nasopharyngitis [Not Recovered/Not Resolved]
  - Fibula fracture [Unknown]
  - Rheumatoid nodule [Not Recovered/Not Resolved]
  - Mass [Not Recovered/Not Resolved]
  - Tibia fracture [Unknown]
  - Localised infection [Unknown]
  - Tooth disorder [Unknown]
  - Wrist fracture [Unknown]
  - Localised infection [Not Recovered/Not Resolved]
  - Fall [Unknown]
  - Contusion [Unknown]
  - Arthralgia [Not Recovered/Not Resolved]
  - Bronchitis [Unknown]
  - Nodule [Not Recovered/Not Resolved]

NARRATIVE: CASE EVENT DATE: 20120807
